FAERS Safety Report 10918711 (Version 2)
Quarter: 2015Q2

REPORT INFORMATION
  Report Type: Report from Study
  Country: AR (occurrence: AR)
  Receive Date: 20150316
  Receipt Date: 20150424
  Transmission Date: 20150821
  Serious: Yes (Hospitalization)
  Sender: FDA-Public Use
  Company Number: AR-009507513-1503ARG006950

PATIENT
  Age: 56 Year
  Sex: Female
  Weight: 56 kg

DRUGS (10)
  1. THERAPY UNSPECIFIED [Suspect]
     Active Substance: UNSPECIFIED INGREDIENT
     Indication: HYPERTENSION
  2. LOSACOR [Suspect]
     Active Substance: LOSARTAN POTASSIUM
     Indication: HYPERTENSION
     Dosage: 50 MG, QD (AT ELEVEN)
     Route: 048
     Dates: start: 20140904, end: 20140905
  3. DICLOFENAC [Suspect]
     Active Substance: DICLOFENAC
     Indication: RHEUMATOID ARTHRITIS
     Dosage: 75 MG, QID
     Route: 048
     Dates: start: 20140904, end: 20141001
  4. DICLOFENAC [Suspect]
     Active Substance: DICLOFENAC
     Indication: ARTHRALGIA
  5. PROPOFOL. [Concomitant]
     Active Substance: PROPOFOL
     Indication: ANAESTHESIA PROCEDURE
     Dosage: 4 ML, ONCE
     Route: 042
     Dates: start: 20140904, end: 20140904
  6. BOSUTINIB [Suspect]
     Active Substance: BOSUTINIB
     Indication: CHRONIC MYELOID LEUKAEMIA
     Dosage: 500 MG, QD
     Route: 048
     Dates: start: 20081217
  7. MORPHINE [Suspect]
     Active Substance: MORPHINE
     Indication: ARTHRALGIA
     Dosage: 1 ML, QD
     Route: 042
     Dates: start: 20140904, end: 20140904
  8. ALPLAX [Concomitant]
  9. CYANOCOBALAMIN (+) THIAMINE [Concomitant]
     Dosage: 1 DF DAILY FOR 1 MONTH
  10. PYRIDOXINE HYDROCHLORIDE. [Concomitant]
     Active Substance: PYRIDOXINE HYDROCHLORIDE
     Dosage: 1 DF, QD

REACTIONS (14)
  - Haemoglobin decreased [Unknown]
  - Nausea [None]
  - Diarrhoea [None]
  - White blood cell count decreased [None]
  - Gastrointestinal disorder [Recovered/Resolved with Sequelae]
  - Platelet count decreased [Unknown]
  - Procedural pain [None]
  - Abdominal pain [None]
  - Blood urea increased [None]
  - Neutrophil count increased [Unknown]
  - Lymphocyte count decreased [Unknown]
  - Vomiting [None]
  - Red blood cell count decreased [Unknown]
  - Blood potassium decreased [None]

NARRATIVE: CASE EVENT DATE: 20140904
